FAERS Safety Report 8401506-0 (Version None)
Quarter: 2012Q2

REPORT INFORMATION
  Report Type: 
  Country: None (occurrence: None)
  Receive Date: 20120601
  Receipt Date: 20120522
  Transmission Date: 20120825
  Serious: Yes (Death, Hospitalization)
  Sender: FDA-Public Use
  Company Number: FR-JNJFOC-20120410146

PATIENT
  Age: 61 Year
  Sex: Male

DRUGS (5)
  1. ZYTIGA [Suspect]
     Indication: PROSTATE CANCER
     Route: 048
     Dates: start: 20120123
  2. PANTOPRAZOLE SODIUM [Concomitant]
     Route: 065
  3. PREDNISOLONE [Concomitant]
     Route: 065
  4. ZOMETA [Concomitant]
     Route: 065
  5. LEUPROLIDE ACETATE [Concomitant]
     Route: 065

REACTIONS (1)
  - HEPATITIS [None]
